FAERS Safety Report 15220029 (Version 2)
Quarter: 2018Q3

REPORT INFORMATION
  Report Type: Spontaneous
  Country: US (occurrence: US)
  Receive Date: 20180731
  Receipt Date: 20180802
  Transmission Date: 20181010
  Serious: No
  Sender: FDA-Public Use
  Company Number: US-PFIZER INC-2018303871

PATIENT
  Age: 4 Year
  Sex: Female

DRUGS (1)
  1. GENOTROPIN MQ [Suspect]
     Active Substance: SOMATROPIN
     Dosage: 0.4 MG, DAILY
     Dates: start: 20140117

REACTIONS (10)
  - Carbon dioxide decreased [Unknown]
  - Lymphocyte morphology abnormal [Unknown]
  - Tri-iodothyronine decreased [Unknown]
  - Anion gap increased [Unknown]
  - Thyroxine increased [Unknown]
  - Blood urea increased [Unknown]
  - Blood sodium increased [Unknown]
  - Blood urea nitrogen/creatinine ratio increased [Unknown]
  - Alanine aminotransferase increased [Unknown]
  - Blood glucose decreased [Unknown]
